FAERS Safety Report 12165797 (Version 3)
Quarter: 2016Q1

REPORT INFORMATION
  Report Type: Spontaneous
  Country: GB (occurrence: GB)
  Receive Date: 20160309
  Receipt Date: 20160324
  Transmission Date: 20160526
  Serious: Yes (Other)
  Sender: FDA-Public Use
  Company Number: GB-WATSON-2016-05317

PATIENT
  Age: 47 Year
  Sex: Male

DRUGS (11)
  1. PREDNISOLONE (UNKNOWN) [Suspect]
     Active Substance: PREDNISOLONE
     Dosage: 5 MG, DAILY
     Route: 065
  2. RITUXIMAB [Concomitant]
     Active Substance: RITUXIMAB
     Dosage: GIVEN 2 WEEKS APART
     Route: 065
     Dates: start: 201305
  3. MYCOPHENOLATE MOFETIL. [Concomitant]
     Active Substance: MYCOPHENOLATE MOFETIL
     Indication: DERMATITIS ATOPIC
     Dosage: 3 G, DAILY
     Route: 065
  4. FUMARIC ACID [Concomitant]
     Active Substance: FUMARIC ACID
     Indication: DERMATITIS ATOPIC
     Dosage: 60 MG, DAILY
     Route: 065
  5. TACROLIMUS. [Concomitant]
     Active Substance: TACROLIMUS
     Indication: DERMATITIS ATOPIC
     Dosage: UNK
     Route: 065
  6. PREDNISOLONE (UNKNOWN) [Suspect]
     Active Substance: PREDNISOLONE
     Indication: DERMATITIS ATOPIC
     Dosage: 20-25 MG DAILY
     Route: 065
  7. CYCLOSPORINE (UNKNOWN) [Suspect]
     Active Substance: CYCLOSPORINE
     Indication: DERMATITIS ATOPIC
     Dosage: 4 MG/KG, DAILY
     Route: 065
  8. AZATHIOPRINE (UNKNOWN) [Suspect]
     Active Substance: AZATHIOPRINE
     Indication: DERMATITIS ATOPIC
     Dosage: 2 MG/KG, DAILY
     Route: 065
  9. RITUXIMAB [Concomitant]
     Active Substance: RITUXIMAB
     Indication: DERMATITIS ATOPIC
     Dosage: 375 MG/M2, DAILY
     Route: 065
     Dates: start: 201208
  10. METHOTREXATE (METHOTREXATE SODIUM) [Suspect]
     Active Substance: METHOTREXATE SODIUM
     Indication: DERMATITIS ATOPIC
     Dosage: 15 MG, 1/WEEK
     Route: 065
  11. PREDNISOLONE (UNKNOWN) [Suspect]
     Active Substance: PREDNISOLONE
     Dosage: 25 MG, DAILY
     Route: 065

REACTIONS (2)
  - Cushingoid [Unknown]
  - Skin infection [Unknown]
